FAERS Safety Report 10153306 (Version 2)
Quarter: 2014Q3

REPORT INFORMATION
  Report Type: Spontaneous
  Country: US (occurrence: US)
  Receive Date: 20140505
  Receipt Date: 20140724
  Transmission Date: 20150326
  Serious: No
  Sender: FDA-Public Use
  Company Number: US-GILEAD-2014-0101630

PATIENT
  Age: 53 Year
  Sex: Female

DRUGS (18)
  1. OMEPRAZOLE. [Concomitant]
     Active Substance: OMEPRAZOLE
  2. AMLODIPINE [Concomitant]
     Active Substance: AMLODIPINE BESYLATE
  3. NITROGLYCERIN. [Concomitant]
     Active Substance: NITROGLYCERIN
  4. CARVEDILOL. [Concomitant]
     Active Substance: CARVEDILOL
  5. TYLENOL [Concomitant]
     Active Substance: ACETAMINOPHEN
  6. IRON [Concomitant]
     Active Substance: IRON
  7. DILTIAZEM [Concomitant]
     Active Substance: DILTIAZEM
  8. LISINOPRIL. [Concomitant]
     Active Substance: LISINOPRIL
  9. REMODULIN [Concomitant]
     Active Substance: TREPROSTINIL
  10. HYDROXYCHLOROQUINE [Concomitant]
     Active Substance: HYDROXYCHLOROQUINE
  11. TRAMADOL [Concomitant]
     Active Substance: TRAMADOL
  12. SYNTHROID [Concomitant]
     Active Substance: LEVOTHYROXINE SODIUM
  13. LETAIRIS [Suspect]
     Active Substance: AMBRISENTAN
     Indication: PULMONARY ARTERIAL HYPERTENSION
     Dosage: 10 MG, QD
     Route: 065
     Dates: start: 20110425
  14. ASPIRIN. [Concomitant]
     Active Substance: ASPIRIN
  15. AMITRIPTYLINE [Concomitant]
     Active Substance: AMITRIPTYLINE
  16. PREDNISONE. [Concomitant]
     Active Substance: PREDNISONE
  17. FLECAINIDE [Concomitant]
     Active Substance: FLECAINIDE
  18. FUROSEMIDE. [Concomitant]
     Active Substance: FUROSEMIDE

REACTIONS (2)
  - Diarrhoea [Unknown]
  - Weight decreased [Unknown]

NARRATIVE: CASE EVENT DATE: 201402
